FAERS Safety Report 26101625 (Version 1)
Quarter: 2025Q4

REPORT INFORMATION
  Report Type: Spontaneous
  Country: CN (occurrence: CN)
  Receive Date: 20251128
  Receipt Date: 20251128
  Transmission Date: 20260118
  Serious: Yes (Other)
  Sender: MERCK SHARP & DOHME LLC
  Company Number: CN-009507513-2355162

PATIENT
  Age: 58 Year
  Sex: Male

DRUGS (3)
  1. TEMOZOLOMIDE [Suspect]
     Active Substance: TEMOZOLOMIDE
     Indication: Glioblastoma
     Dosage: 75 MG/M2 ONCE DAILY (120 MG) ORALLY FOR 42 DAYS
     Route: 048
     Dates: start: 20211113, end: 20211224
  2. TEMOZOLOMIDE [Suspect]
     Active Substance: TEMOZOLOMIDE
     Indication: Glioblastoma
     Dosage: TIME INTERVAL: CYCLICAL: 150 MG/M2/DAY (260 MG/DAY) FOR DAYS 1 TO 5 OF EACH 28-DAY CYCLE (AUXILIA...
     Route: 048
     Dates: start: 20220122, end: 20220218
  3. TEMOZOLOMIDE [Suspect]
     Active Substance: TEMOZOLOMIDE
     Indication: Glioblastoma
     Dosage: TIME INTERVAL: CYCLICAL: 200 MG/M2/DAY (320 MG/DAY) FOR DAYS 1 TO 5 OF EACH 28-DAY CYCLE (AUXILIA...
     Route: 048
     Dates: start: 20220219, end: 20220708

REACTIONS (3)
  - Glioblastoma [Recovering/Resolving]
  - Tumour pseudoprogression [Recovering/Resolving]
  - Recurrent cancer [Recovering/Resolving]

NARRATIVE: CASE EVENT DATE: 20221101
